FAERS Safety Report 10407592 (Version 3)
Quarter: 2015Q1

REPORT INFORMATION
  Report Type: Spontaneous
  Country: US (occurrence: US)
  Receive Date: 20140825
  Receipt Date: 20150316
  Transmission Date: 20150720
  Serious: No
  Sender: FDA-Public Use
  Company Number: US-PFIZER INC-2014235800

PATIENT
  Age: 65 Year
  Sex: Male
  Weight: 90.7 kg

DRUGS (3)
  1. LYRICA [Suspect]
     Active Substance: PREGABALIN
     Indication: NERVE INJURY
  2. LYRICA [Suspect]
     Active Substance: PREGABALIN
     Indication: DIABETIC NEUROPATHY
     Dosage: 100 MG, 2X/DAY
     Route: 048
  3. LYRICA [Suspect]
     Active Substance: PREGABALIN
     Indication: NEUROPATHY PERIPHERAL

REACTIONS (2)
  - Headache [Unknown]
  - Influenza [Unknown]

NARRATIVE: CASE EVENT DATE: 20140822
